FAERS Safety Report 13732852 (Version 2)
Quarter: 2017Q3

REPORT INFORMATION
  Report Type: Spontaneous
  Country: US (occurrence: US)
  Receive Date: 20170707
  Receipt Date: 20170925
  Transmission Date: 20171127
  Serious: No
  Sender: FDA-Public Use
  Company Number: US-NATCO PHARMA-2017NAT00063

PATIENT
  Age: 51 Year
  Sex: Male

DRUGS (6)
  1. OSELTAMIVIR PHOSPHATE. [Suspect]
     Active Substance: OSELTAMIVIR PHOSPHATE
     Dosage: UNK
     Dates: start: 20170603, end: 20170603
  2. ^PRATIPRAZOL^ [Concomitant]
  3. RANITIDINE. [Concomitant]
     Active Substance: RANITIDINE
  4. URSODIOL. [Concomitant]
     Active Substance: URSODIOL
  5. UNSPECIFIED ANTIBIOTIC [Concomitant]
     Active Substance: UNSPECIFIED INGREDIENT
  6. CITALOPRAM [Concomitant]
     Active Substance: CITALOPRAM HYDROBROMIDE

REACTIONS (2)
  - Vomiting [Recovered/Resolved]
  - Retching [Recovered/Resolved]

NARRATIVE: CASE EVENT DATE: 20170603
